FAERS Safety Report 10252520 (Version 2)
Quarter: 2014Q2

REPORT INFORMATION
  Report Type: Spontaneous
  Country: US (occurrence: US)
  Receive Date: 20140623
  Receipt Date: 20140623
  Transmission Date: 20141212
  Serious: Yes (Other)
  Sender: FDA-Public Use
  Company Number: US-GILEAD-US-CVT-100548

PATIENT
  Age: 60 Year
  Sex: Female
  Weight: 102.95 kg

DRUGS (12)
  1. RANEXA [Suspect]
     Indication: ANGINA PECTORIS
     Route: 048
     Dates: start: 20100706, end: 20100819
  2. ACTOPLUS MET [Concomitant]
  3. ASPIRIN                            /00002701/ [Concomitant]
  4. CRESTOR                            /01588601/ [Concomitant]
  5. FUROSEMIDE                         /00032601/ [Concomitant]
  6. LEXAPRO [Concomitant]
  7. LISINOPRIL                         /00894001/ [Concomitant]
  8. METOPROLOL SUCCINATE [Concomitant]
  9. NITROGLYCERIN [Concomitant]
  10. PLAVIX [Concomitant]
  11. RANITIDINE /00550801/ [Concomitant]
  12. TRAMADOL-ACETAMINOPHEN [Concomitant]

REACTIONS (2)
  - Torsade de pointes [Unknown]
  - Ventricular tachycardia [Unknown]
